FAERS Safety Report 18783334 (Version 1)
Quarter: 2021Q1

REPORT INFORMATION
  Report Type: Report from Study
  Country: US (occurrence: US)
  Receive Date: 20210125
  Receipt Date: 20210125
  Transmission Date: 20210419
  Serious: Yes (Death, Life-Threatening, Hospitalization, Disabling, Other)
  Sender: FDA-Public Use
  Company Number: US-PFIZER INC-2021058261

PATIENT
  Age: 57 Year
  Sex: Female
  Weight: 122 kg

DRUGS (40)
  1. IDARUBICIN HCL [Suspect]
     Active Substance: IDARUBICIN HYDROCHLORIDE
     Indication: ACUTE MYELOID LEUKAEMIA
     Dosage: 29 MG, 1X/DAY
     Route: 042
     Dates: start: 20171117, end: 20171119
  2. NYSTATIN. [Concomitant]
     Active Substance: NYSTATIN
  3. LASIX [Concomitant]
     Active Substance: FUROSEMIDE
     Dosage: 20 MG
     Dates: start: 20171118, end: 20180104
  4. SENOKOT [Concomitant]
     Active Substance: SENNOSIDES
     Dosage: UNK
     Dates: start: 20171112, end: 20180104
  5. ELAVIL [Concomitant]
     Active Substance: AMITRIPTYLINE HYDROCHLORIDE
     Dosage: 10 MG
     Dates: start: 20171113, end: 20171113
  6. NEOSYNEPHRINE [Concomitant]
     Active Substance: PHENYLEPHRINE HYDROCHLORIDE
     Dosage: UNK
     Dates: start: 20171113, end: 20171113
  7. K?LYTE [POTASSIUM BICARBONATE] [Concomitant]
     Active Substance: POTASSIUM BICARBONATE
     Dosage: 25 MEQ
     Dates: start: 20171114, end: 20171126
  8. HUMALOG [Concomitant]
     Active Substance: INSULIN LISPRO
     Dosage: UNK
     Dates: start: 20171116, end: 20171209
  9. SODIUM CHLORIDE. [Concomitant]
     Active Substance: SODIUM CHLORIDE
     Dosage: 0.9 %, INFUSION
     Dates: start: 20171112, end: 20180104
  10. POTASSIUM CHLORIDE. [Concomitant]
     Active Substance: POTASSIUM CHLORIDE
     Dosage: UNK
     Dates: start: 20171113, end: 20171207
  11. ELITEK [Concomitant]
     Active Substance: RASBURICASE
  12. EMEND (FOSAPREPITANT DIMEGLUMINE) [Concomitant]
     Active Substance: FOSAPREPITANT DIMEGLUMINE
     Dosage: 150 MG
     Dates: start: 20171117, end: 20171120
  13. ZOSYN [Concomitant]
     Active Substance: PIPERACILLIN SODIUM\TAZOBACTAM SODIUM
     Dosage: UNK
     Dates: start: 20171122
  14. AVELOX [Concomitant]
     Active Substance: MOXIFLOXACIN HYDROCHLORIDE
     Dosage: 400 MG
     Dates: start: 20171118, end: 20171122
  15. VANCOMYCIN [Concomitant]
     Active Substance: VANCOMYCIN
     Dosage: UNK
     Dates: start: 20171114, end: 20171224
  16. ATIVAN [Concomitant]
     Active Substance: LORAZEPAM
     Dosage: 1 MG
     Dates: start: 20171117, end: 20180104
  17. TYLENOL [Concomitant]
     Active Substance: ACETAMINOPHEN
     Dosage: 650 MG
     Dates: start: 20171114, end: 20171127
  18. PHENOL. [Concomitant]
     Active Substance: PHENOL
     Dosage: UNK
     Dates: start: 20171113, end: 20180104
  19. CIPRO [Concomitant]
     Active Substance: CIPROFLOXACIN HYDROCHLORIDE
     Dosage: 500 MG
     Dates: start: 20171114, end: 20171122
  20. MAGNESIUM SULFATE. [Concomitant]
     Active Substance: MAGNESIUM SULFATE
     Dosage: UNK
     Dates: start: 20171115, end: 20171207
  21. GLUCOSE [Concomitant]
     Active Substance: DEXTROSE
     Dosage: 4 G
     Dates: start: 20171115, end: 20171208
  22. MELATONIN [Concomitant]
     Active Substance: MELATONIN
     Dosage: 3 MG
     Dates: start: 20171116, end: 20171217
  23. COLACE [Concomitant]
     Active Substance: DOCUSATE SODIUM
     Dosage: UNK
     Dates: start: 20171112, end: 20171127
  24. ZOFRAN [Concomitant]
     Active Substance: ONDANSETRON HYDROCHLORIDE
  25. NORVASC [Concomitant]
     Active Substance: AMLODIPINE BESYLATE
     Dosage: UNK
     Dates: start: 20171113, end: 20171209
  26. DIFLUCAN [Concomitant]
     Active Substance: FLUCONAZOLE
     Dosage: 150 MG
     Dates: start: 20171120, end: 20171214
  27. COMPAZINE [Concomitant]
     Active Substance: PROCHLORPERAZINE MALEATE
  28. LANTUS [Concomitant]
     Active Substance: INSULIN GLARGINE
  29. SUBLIMAZE [Concomitant]
     Active Substance: FENTANYL CITRATE
     Dosage: UNK
     Dates: start: 20171114
  30. RENVELA [Concomitant]
     Active Substance: SEVELAMER CARBONATE
     Dosage: 800 MG
     Dates: start: 20171119, end: 20171125
  31. ASP2215 [Suspect]
     Active Substance: GILTERITINIB
     Indication: ACUTE MYELOID LEUKAEMIA
     Dosage: 200 MG, 1X/DAY, TABLET
     Route: 048
     Dates: start: 20171117, end: 20171201
  32. ZYLOPRIM [Concomitant]
     Active Substance: ALLOPURINOL
     Dosage: 300 MG
     Dates: start: 20171112, end: 20171124
  33. XYLOCAINE [Concomitant]
     Active Substance: LIDOCAINE HYDROCHLORIDE
     Dosage: 5 ML
     Dates: start: 20171113, end: 20171113
  34. K?DUR [Concomitant]
     Active Substance: POTASSIUM CHLORIDE
     Dosage: UNK
     Dates: start: 20171115, end: 20171118
  35. DEXTROSE. [Concomitant]
     Active Substance: DEXTROSE
     Dosage: UNK
     Dates: start: 20171115, end: 20171208
  36. ZOVIRAX [Concomitant]
     Active Substance: ACYCLOVIR
     Dosage: 400 MG
     Dates: start: 20171119, end: 20180104
  37. VERSED [Concomitant]
     Active Substance: MIDAZOLAM HYDROCHLORIDE
     Dosage: UNK
     Dates: start: 20171114
  38. HYDREA [Concomitant]
     Active Substance: HYDROXYUREA
     Dosage: 1000 MG
     Dates: start: 20171112, end: 20171117
  39. LIDOCAINE. [Concomitant]
     Active Substance: LIDOCAINE
     Dosage: UNK
     Dates: start: 20171113, end: 20180104
  40. CYTARABINE. [Suspect]
     Active Substance: CYTARABINE
     Indication: ACUTE MYELOID LEUKAEMIA
     Dosage: 240 MG, 1X/DAY
     Route: 042
     Dates: start: 20171117, end: 20171123

REACTIONS (5)
  - Respiratory failure [Recovered/Resolved]
  - Febrile neutropenia [Recovered/Resolved]
  - Neutropenic colitis [Fatal]
  - Fungaemia [Recovered/Resolved]
  - Acute kidney injury [Recovered/Resolved]

NARRATIVE: CASE EVENT DATE: 20171117
